FAERS Safety Report 24965923 (Version 1)
Quarter: 2025Q1

REPORT INFORMATION
  Report Type: Spontaneous
  Country: US (occurrence: US)
  Receive Date: 20250213
  Receipt Date: 20250213
  Transmission Date: 20250409
  Serious: No
  Sender: FRESENIUS KABI
  Company Number: US-FreseniusKabi-FK202501863

PATIENT
  Age: 79 Year
  Sex: Female

DRUGS (1)
  1. CONSTULOSE [Suspect]
     Active Substance: LACTULOSE
     Indication: Constipation
     Dosage: IN AFTERNOON FIRST TIME ON 01/24/2025 (FRIDAY) FOLLOWED BY 2ND DOSE ON 01/26/2025 (SUNDAY) AND 3RD O
     Route: 048
     Dates: start: 20250124, end: 20250128

REACTIONS (5)
  - Rhinitis [Not Recovered/Not Resolved]
  - Upper-airway cough syndrome [Not Recovered/Not Resolved]
  - Oropharyngeal discomfort [Not Recovered/Not Resolved]
  - Chest pain [Not Recovered/Not Resolved]
  - Drug ineffective [Unknown]

NARRATIVE: CASE EVENT DATE: 20250128
